FAERS Safety Report 4467999-9 (Version None)
Quarter: 2004Q4

REPORT INFORMATION
  Report Type: 
  Country: None (occurrence: None)
  Receive Date: 20041007
  Receipt Date: 20040826
  Transmission Date: 20050328
  Serious: Yes (Life-Threatening, Hospitalization)
  Sender: FDA-Public Use
  Company Number: US-BRISTOL-MYERS SQUIBB COMPANY-12684486

PATIENT
  Age: 69 Year
  Sex: Female
  Weight: 34 kg

DRUGS (14)
  1. ERBITUX [Suspect]
     Indication: COLON CANCER METASTATIC
     Dosage: 725 MG PRESCRIBED (400 MG/M2).  DURATION 0-2 MINUTES.
     Route: 042
     Dates: start: 20040826, end: 20040826
  2. BENADRYL [Concomitant]
     Indication: PREMEDICATION
     Route: 042
     Dates: start: 20040826, end: 20040826
  3. ALLEGRA [Concomitant]
  4. ASPIRIN [Concomitant]
  5. ATENOLOL [Concomitant]
  6. ATIVAN [Concomitant]
  7. CARTIA XT [Concomitant]
  8. COUMADIN [Concomitant]
  9. LASIX [Concomitant]
  10. PERCOCET [Concomitant]
  11. POTASSIUM SUPPLEMENT [Concomitant]
  12. PROTONIX [Concomitant]
  13. SYNTHROID [Concomitant]
  14. VERAPAMIL [Concomitant]

REACTIONS (3)
  - BLOOD PRESSURE DECREASED [None]
  - CARDIO-RESPIRATORY ARREST [None]
  - TACHYCARDIA [None]
